FAERS Safety Report 7366482-0 (Version None)
Quarter: 2011Q1

REPORT INFORMATION
  Report Type: 
  Country: None (occurrence: None)
  Receive Date: 20110322
  Receipt Date: 20110308
  Transmission Date: 20110831
  Serious: Yes (Hospitalization)
  Sender: FDA-Public Use
  Company Number: US-JNJFOC-20110100407

PATIENT
  Sex: Female
  Weight: 48.4 kg

DRUGS (8)
  1. MERCAPTOPURINE [Concomitant]
  2. REMICADE [Suspect]
     Dosage: 3RD DOSE
     Route: 042
  3. REMICADE [Suspect]
     Route: 042
  4. REMICADE [Suspect]
     Dosage: 5TH DOSE
     Route: 042
  5. PREDNISONE [Concomitant]
  6. METRONIDAZOLE [Concomitant]
  7. MESALAMINE [Concomitant]
     Route: 048
  8. REMICADE [Suspect]
     Indication: COLITIS ULCERATIVE
     Route: 042

REACTIONS (2)
  - HAEMOGLOBIN DECREASED [None]
  - COLITIS ULCERATIVE [None]
